FAERS Safety Report 9786255 (Version 3)
Quarter: 2014Q2

REPORT INFORMATION
  Report Type: Spontaneous
  Country: FR (occurrence: None)
  Receive Date: 20131224
  Receipt Date: 20140514
  Transmission Date: 20141212
  Serious: Yes (Death, Hospitalization)
  Sender: FDA-Public Use
  Company Number: 2013-FR-004762

PATIENT
  Age: 49 Year
  Sex: Female

DRUGS (5)
  1. PRIALT [Suspect]
     Indication: PAIN
     Route: 037
     Dates: start: 20130606
  2. MORPHINE [Suspect]
     Route: 037
     Dates: start: 20130606
  3. NAROPEINE [Suspect]
     Route: 037
     Dates: start: 20130606
  4. LYRICA (PREGABALIN) [Concomitant]
  5. LEVOTHYROX (LEVOTHYROXINE SODIUM) [Concomitant]

REACTIONS (14)
  - Delusional disorder, unspecified type [None]
  - Hallucinations, mixed [None]
  - Irritability [None]
  - Social avoidant behaviour [None]
  - Suspiciousness [None]
  - Incoherent [None]
  - Blood alkaline phosphatase decreased [None]
  - Haemoglobin decreased [None]
  - Aggression [None]
  - Inappropriate schedule of drug administration [None]
  - Lung adenocarcinoma metastatic [None]
  - Malignant neoplasm progression [None]
  - Disorientation [None]
  - Terminal state [None]
